FAERS Safety Report 8143994-3 (Version None)
Quarter: 2012Q1

REPORT INFORMATION
  Report Type: 
  Country: None (occurrence: None)
  Receive Date: 20120217
  Receipt Date: 20120217
  Transmission Date: 20120608
  Serious: Yes (Hospitalization)
  Sender: FDA-Public Use
  Company Number: None

PATIENT
  Age: 76 Year
  Sex: Female

DRUGS (9)
  1. CALCIUM [Concomitant]
  2. GLUCOSAMINE [Concomitant]
  3. VERAPAMIL [Concomitant]
  4. LEVOTHYROXINE SODIUM [Concomitant]
  5. SUTENT [Suspect]
     Indication: RENAL CANCER
     Dosage: 50.0 MG
     Route: 048
     Dates: start: 20120104, end: 20120125
  6. FUROSEMIDE [Concomitant]
  7. MULTI-VITAMIN [Concomitant]
     Route: 048
  8. ALLOPURINOL [Concomitant]
     Route: 048
  9. CHONDROITIN [Concomitant]

REACTIONS (10)
  - ANORECTAL DISORDER [None]
  - DIARRHOEA [None]
  - DEHYDRATION [None]
  - PLATELET COUNT DECREASED [None]
  - CONTUSION [None]
  - HAEMORRHAGE [None]
  - OXYGEN SATURATION DECREASED [None]
  - STOMATITIS [None]
  - FLUID INTAKE REDUCED [None]
  - APHAGIA [None]
